FAERS Safety Report 11094034 (Version 1)
Quarter: 2015Q2

REPORT INFORMATION
  Report Type: Spontaneous
  Country: US (occurrence: US)
  Receive Date: 20150506
  Receipt Date: 20150506
  Transmission Date: 20150821
  Serious: Yes (Other)
  Sender: FDA-Public Use
  Company Number: US-TEVA-559854USA

PATIENT
  Age: 24 Year
  Sex: Female
  Weight: 69.92 kg

DRUGS (6)
  1. PERCOCET [Interacting]
     Active Substance: ACETAMINOPHEN\OXYCODONE HYDROCHLORIDE
     Route: 065
  2. VALIUM [Interacting]
     Active Substance: DIAZEPAM
     Route: 065
  3. ADDERALL [Suspect]
     Active Substance: AMPHETAMINE ASPARTATE\AMPHETAMINE SULFATE\DEXTROAMPHETAMINE SACCHARATE\DEXTROAMPHETAMINE SULFATE
     Route: 065
  4. PROVIGIL [Interacting]
     Active Substance: MODAFINIL
     Dosage: 200 MILLIGRAM DAILY;
     Route: 065
     Dates: start: 201303, end: 201403
  5. PROVIGIL [Interacting]
     Active Substance: MODAFINIL
     Dosage: 400 MILLIGRAM DAILY;
     Route: 065
     Dates: start: 201406
  6. ALCOHOL. [Interacting]
     Active Substance: ALCOHOL
     Route: 065

REACTIONS (10)
  - Alcohol interaction [Unknown]
  - Anaesthetic complication [Unknown]
  - Dental operation [Unknown]
  - Chills [Unknown]
  - Multiple-drug resistance [Unknown]
  - Keratomileusis [Unknown]
  - Adverse event [Unknown]
  - Dyskinesia [Unknown]
  - Restlessness [Unknown]
  - Drug ineffective [Unknown]

NARRATIVE: CASE EVENT DATE: 201403
